FAERS Safety Report 25899093 (Version 1)
Quarter: 2025Q4

REPORT INFORMATION
  Report Type: Spontaneous
  Country: US (occurrence: US)
  Receive Date: 20251009
  Receipt Date: 20251009
  Transmission Date: 20260118
  Serious: No
  Sender: BAUSCH AND LOMB
  Company Number: US-BAUSCHBL-2025BNL029379

PATIENT
  Age: 70 Year
  Sex: Male

DRUGS (1)
  1. MIEBO [Suspect]
     Active Substance: PERFLUOROHEXYLOCTANE
     Indication: Product used for unknown indication
     Dosage: 3 TIMES PER DAY, NOT 4 AS RECOMMENDED
     Route: 047

REACTIONS (7)
  - Burning sensation [Recovered/Resolved]
  - Pain [Recovered/Resolved]
  - Patient dissatisfaction with treatment [Unknown]
  - Inappropriate schedule of product administration [Unknown]
  - Product use issue [Unknown]
  - Product use complaint [Unknown]
  - Product knowledge deficit [Unknown]
